FAERS Safety Report 5819891-2 (Version None)
Quarter: 2008Q3

REPORT INFORMATION
  Report Type: 
  Country: None (occurrence: None)
  Receive Date: 20080723
  Receipt Date: 20080718
  Transmission Date: 20090109
  Serious: Yes (Congenital Anomaly)
  Sender: FDA-Public Use
  Company Number: AU-MERCK-0807AUS00212B1

PATIENT

DRUGS (1)
  1. PROPECIA [Suspect]
     Indication: ANDROGENETIC ALOPECIA
     Route: 064

REACTIONS (1)
  - CONGENITAL MUSCULOSKELETAL ANOMALY [None]
